FAERS Safety Report 6558662-9 (Version None)
Quarter: 2010Q1

REPORT INFORMATION
  Report Type: 
  Country: None (occurrence: None)
  Receive Date: 20100128
  Receipt Date: 20100128
  Transmission Date: 20100710
  Serious: No
  Sender: FDA-Public Use
  Company Number: None

PATIENT
  Age: 65 Year
  Sex: Female
  Weight: 53.5244 kg

DRUGS (1)
  1. BACTRIM [Suspect]
     Indication: CELLULITIS
     Dates: start: 20091127, end: 20091205

REACTIONS (1)
  - DRUG HYPERSENSITIVITY [None]
